FAERS Safety Report 6393874-9 (Version None)
Quarter: 2009Q4

REPORT INFORMATION
  Report Type: 
  Country: None (occurrence: None)
  Receive Date: 20091008
  Receipt Date: 20090925
  Transmission Date: 20100525
  Serious: Yes (Hospitalization)
  Sender: FDA-Public Use
  Company Number: US-PFIZER INC-2009273872

PATIENT
  Sex: Male
  Weight: 76.19 kg

DRUGS (20)
  1. BLINDED *NAPROXEN [Suspect]
     Indication: OSTEOARTHRITIS
     Dosage: UNK
     Route: 048
     Dates: start: 20090821, end: 20090904
  2. BLINDED *NO SUBJECT DRUG [Suspect]
     Indication: OSTEOARTHRITIS
     Dosage: UNK
     Route: 048
     Dates: start: 20090821, end: 20090904
  3. BLINDED *PLACEBO [Suspect]
     Indication: OSTEOARTHRITIS
     Dosage: UNK
     Route: 048
     Dates: start: 20090821, end: 20090904
  4. CELECOXIB [Suspect]
     Indication: OSTEOARTHRITIS
     Dosage: UNK
     Route: 048
     Dates: start: 20090821, end: 20090904
  5. BLINDED IBUPROFEN [Suspect]
     Indication: OSTEOARTHRITIS
     Dosage: UNK
     Route: 048
     Dates: start: 20090821, end: 20090904
  6. BLINDED NAPROXEN [Suspect]
     Dosage: UNK
     Route: 048
     Dates: start: 20090821, end: 20090904
  7. BLINDED *NAPROXEN [Suspect]
     Indication: RHEUMATOID ARTHRITIS
  8. BLINDED *NO SUBJECT DRUG [Suspect]
     Indication: RHEUMATOID ARTHRITIS
  9. BLINDED *PLACEBO [Suspect]
     Indication: RHEUMATOID ARTHRITIS
  10. CELECOXIB [Suspect]
     Indication: RHEUMATOID ARTHRITIS
  11. BLINDED IBUPROFEN [Suspect]
     Indication: RHEUMATOID ARTHRITIS
  12. BLINDED NAPROXEN [Suspect]
  13. NEXIUM [Concomitant]
     Dosage: 20 MG, 1X/DAY
     Route: 048
     Dates: start: 20090821, end: 20090904
  14. BENICAR HCT [Concomitant]
     Dosage: UNK
     Route: 048
     Dates: start: 20090101
  15. NOVOLOG [Concomitant]
     Dosage: UNK
     Route: 042
     Dates: start: 19950101
  16. LANTUS [Concomitant]
     Dosage: UNK
     Route: 042
     Dates: start: 19950101
  17. GLUCOSAMINE [Concomitant]
     Dosage: UNK
     Route: 048
     Dates: start: 20090601
  18. TURMERIC [Concomitant]
     Dosage: UNK
     Route: 048
     Dates: start: 20080801
  19. CYANOCOBALAMIN [Concomitant]
     Dosage: UNK
     Route: 048
     Dates: start: 20090101
  20. ACETYLSALICYLIC ACID [Concomitant]
     Dosage: UNK
     Route: 048
     Dates: start: 19890801

REACTIONS (1)
  - CONVULSION [None]
